FAERS Safety Report 10152711 (Version 1)
Quarter: 2014Q2

REPORT INFORMATION
  Report Type: Spontaneous
  Country: US (occurrence: None)
  Receive Date: 20140502
  Receipt Date: 20140502
  Transmission Date: 20141212
  Serious: Yes (Hospitalization)
  Sender: FDA-Public Use
  Company Number: None

PATIENT
  Age: 33 Year
  Sex: Female
  Weight: 79.37 kg

DRUGS (1)
  1. CISPLATIN [Suspect]

REACTIONS (13)
  - Rash pruritic [None]
  - Hypersensitivity [None]
  - Chills [None]
  - Pyrexia [None]
  - Flank pain [None]
  - Fatigue [None]
  - Pyelonephritis [None]
  - Bacteraemia [None]
  - Bladder spasm [None]
  - Pain [None]
  - Urinary bladder haemorrhage [None]
  - Anaemia of chronic disease [None]
  - Iron deficiency [None]
